FAERS Safety Report 6453326-4 (Version None)
Quarter: 2009Q4

REPORT INFORMATION
  Report Type: 
  Country: None (occurrence: None)
  Receive Date: 20091124
  Receipt Date: 20091117
  Transmission Date: 20100525
  Serious: Yes (Hospitalization, Other)
  Sender: FDA-Public Use
  Company Number: US-RB-016796-09

PATIENT
  Age: 25 Year
  Sex: Male

DRUGS (5)
  1. SUBOXONE [Suspect]
     Indication: DRUG USE FOR UNKNOWN INDICATION
     Dosage: UNKNOWN DOSING INFORMATION.
     Route: 065
  2. SUBOXONE [Suspect]
     Dosage: UNKNOWN DOSE
     Route: 065
  3. SUBOXONE [Suspect]
     Route: 065
  4. XANAX [Concomitant]
     Indication: DRUG USE FOR UNKNOWN INDICATION
     Dosage: DOSING INFORMATION UNKNOWN.
     Route: 065
  5. ZOLOFT [Concomitant]
     Indication: DRUG USE FOR UNKNOWN INDICATION
     Route: 065

REACTIONS (38)
  - AFFECT LABILITY [None]
  - ANXIETY [None]
  - ASTHENIA [None]
  - BLINDNESS [None]
  - BLOOD PRESSURE INCREASED [None]
  - BRONCHITIS [None]
  - CHEST PAIN [None]
  - CYST [None]
  - DIZZINESS [None]
  - DYSPNOEA [None]
  - EAR HAEMORRHAGE [None]
  - EPISTAXIS [None]
  - EUPHORIC MOOD [None]
  - FEELING JITTERY [None]
  - HEADACHE [None]
  - HEART RATE INCREASED [None]
  - HYPERHIDROSIS [None]
  - INFLUENZA [None]
  - LOGORRHOEA [None]
  - MENTAL IMPAIRMENT [None]
  - MIGRAINE [None]
  - MIOSIS [None]
  - NASAL CYST [None]
  - NAUSEA [None]
  - OXYGEN SATURATION DECREASED [None]
  - PAIN [None]
  - PANIC ATTACK [None]
  - PERSONALITY CHANGE [None]
  - PHOTOPHOBIA [None]
  - PHOTOPSIA [None]
  - PYREXIA [None]
  - SLEEP DISORDER [None]
  - SYNCOPE [None]
  - VOMITING [None]
  - WEIGHT DECREASED [None]
  - WEIGHT GAIN POOR [None]
  - WITHDRAWAL SYNDROME [None]
  - YAWNING [None]
